FAERS Safety Report 4295017-4 (Version None)
Quarter: 2004Q1

REPORT INFORMATION
  Report Type: 
  Country: None (occurrence: None)
  Receive Date: 20040212
  Receipt Date: 20040212
  Transmission Date: 20041129
  Serious: No
  Sender: FDA-Public Use
  Company Number: None

PATIENT
  Age: 82 Year
  Sex: Female
  Weight: 60.3284 kg

DRUGS (8)
  1. NAMENDA [Suspect]
     Indication: DEMENTIA
     Dosage: 5 MG PO EVERY AM
     Route: 048
     Dates: start: 20040127
  2. NAMENDA [Suspect]
     Indication: DEMENTIA ALZHEIMER'S TYPE
     Dosage: 5 MG PO EVERY AM
     Route: 048
     Dates: start: 20040127
  3. CELEXA [Concomitant]
  4. VITAMIN B [Concomitant]
  5. INDERAL [Concomitant]
  6. EXELON [Concomitant]
  7. MEMORY REVITALIZER (MVI) [Concomitant]
  8. HYDROCHLOROTHIAZIDE [Concomitant]

REACTIONS (2)
  - COMA [None]
  - CONVULSION [None]
